FAERS Safety Report 6973917-1 (Version None)
Quarter: 2010Q3

REPORT INFORMATION
  Report Type: 
  Country: None (occurrence: None)
  Receive Date: 20100907
  Receipt Date: 20100827
  Transmission Date: 20110219
  Serious: Yes (Hospitalization)
  Sender: FDA-Public Use
  Company Number: 015846

PATIENT
  Sex: Male

DRUGS (4)
  1. VIMPAT [Suspect]
     Indication: PARTIAL SEIZURES
     Dosage: (ORAL) (200 MG BID ORAL)
     Route: 048
     Dates: start: 20100527, end: 20100804
  2. SABRIL [Concomitant]
  3. LAMOTRIGINE [Concomitant]
  4. TRILEPTAL [Concomitant]

REACTIONS (6)
  - BALANCE DISORDER [None]
  - DRUG LEVEL INCREASED [None]
  - NAUSEA [None]
  - VERTIGO [None]
  - VISION BLURRED [None]
  - VOMITING [None]
